FAERS Safety Report 24276541 (Version 1)
Quarter: 2024Q3

REPORT INFORMATION
  Report Type: Spontaneous
  Country: DE (occurrence: DE)
  Receive Date: 20240903
  Receipt Date: 20240903
  Transmission Date: 20241017
  Serious: Yes (Hospitalization, Other)
  Sender: RANBAXY
  Company Number: DE-BFARM-24003670

PATIENT
  Age: 66 Year
  Sex: Female
  Weight: 83 kg

DRUGS (4)
  1. PREGABALIN [Suspect]
     Active Substance: PREGABALIN
     Indication: Neuralgia
     Dosage: 1-0-1
     Route: 065
     Dates: start: 20230930, end: 20231205
  2. PREGABALIN [Suspect]
     Active Substance: PREGABALIN
     Dosage: 0-0-1 (TAPERING THERAPY)
     Route: 065
     Dates: start: 20231206, end: 20231226
  3. Vitamin B6 Hevert Tabletten [Concomitant]
     Indication: Vitamin B6 deficiency
     Dosage: UNK
     Route: 065
  4. EUTHYROX [Concomitant]
     Active Substance: LEVOTHYROXINE SODIUM
     Indication: Product used for unknown indication
     Dosage: 1-0-0
     Route: 065

REACTIONS (32)
  - Syncope [Recovered/Resolved with Sequelae]
  - Seizure [Recovered/Resolved with Sequelae]
  - Loss of consciousness [Recovering/Resolving]
  - Muscular weakness [Recovering/Resolving]
  - Respiratory rate increased [Recovering/Resolving]
  - Asthenia [Recovering/Resolving]
  - Haematoma [Recovering/Resolving]
  - Apathy [Recovering/Resolving]
  - Gait disturbance [Recovering/Resolving]
  - Depressed mood [Unknown]
  - Palpitations [Recovering/Resolving]
  - Somnolence [Unknown]
  - Myalgia [Recovering/Resolving]
  - Bone contusion [Not Recovered/Not Resolved]
  - Restlessness [Recovering/Resolving]
  - Muscle spasms [Recovering/Resolving]
  - Dizziness [Recovering/Resolving]
  - Muscle spasms [Recovering/Resolving]
  - Limb injury [Recovering/Resolving]
  - Thinking abnormal [Unknown]
  - Disturbance in attention [Unknown]
  - Mobility decreased [Recovering/Resolving]
  - Fall [Recovering/Resolving]
  - Tremor [Recovering/Resolving]
  - Urinary incontinence [Recovered/Resolved]
  - Musculoskeletal stiffness [Recovering/Resolving]
  - Muscle spasms [Recovering/Resolving]
  - Tension [Recovering/Resolving]
  - Feeling cold [Not Recovered/Not Resolved]
  - Pain [Recovering/Resolving]
  - Withdrawal syndrome [Not Recovered/Not Resolved]
  - Panic attack [Recovering/Resolving]

NARRATIVE: CASE EVENT DATE: 20231201
